FAERS Safety Report 4504623-0 (Version None)
Quarter: 2004Q4

REPORT INFORMATION
  Report Type: 
  Country: None (occurrence: None)
  Receive Date: 20041116
  Receipt Date: 20041112
  Transmission Date: 20050328
  Serious: Yes (Other)
  Sender: FDA-Public Use
  Company Number: THQ2004A00969

PATIENT
  Age: 41 Year
  Sex: Female

DRUGS (3)
  1. LEUPROLIDE ACETATE [Suspect]
     Indication: ENDOMETRIOSIS
     Dosage: 11.25 MG (11.25 MG 1 IN 1 M)
     Dates: start: 20040206, end: 20040429
  2. DOXYCYCLINE [Concomitant]
  3. THYROXINE (LEVOTHYROXINE SODIUM) [Concomitant]

REACTIONS (7)
  - ARTHRALGIA [None]
  - DISCOMFORT [None]
  - MEDICATION ERROR [None]
  - MYALGIA [None]
  - OVERDOSE [None]
  - PAIN [None]
  - PERIARTHRITIS [None]
